FAERS Safety Report 10267107 (Version 9)
Quarter: 2017Q2

REPORT INFORMATION
  Report Type: Spontaneous
  Country: RU (occurrence: RU)
  Receive Date: 20140630
  Receipt Date: 20170411
  Transmission Date: 20170829
  Serious: Yes (Other)
  Sender: FDA-Public Use
  Company Number: RU-AMGEN-RUSSP2014039095

PATIENT
  Age: 73 Year
  Sex: Male

DRUGS (23)
  1. FILGRASTIM [Suspect]
     Active Substance: FILGRASTIM
     Dosage: 300 MKG, UNK
     Route: 065
     Dates: start: 20140512, end: 20140512
  2. BENDAMUSTINE [Suspect]
     Active Substance: BENDAMUSTINE
     Indication: CHRONIC LYMPHOCYTIC LEUKAEMIA
     Dosage: 70 MG/M2, 1 IN 1 D (INFUSION RATE: 120)
     Route: 042
     Dates: start: 20140226, end: 20140226
  3. DABIGATRAN ETEXILATE [Concomitant]
     Active Substance: DABIGATRAN ETEXILATE
     Dosage: 150 MG, QD
     Route: 048
     Dates: start: 20140921
  4. FILGRASTIM [Suspect]
     Active Substance: FILGRASTIM
     Indication: NEUTROPENIA
     Dosage: 300 MKG , UNK
     Route: 065
     Dates: start: 20140313, end: 20140313
  5. FILGRASTIM [Suspect]
     Active Substance: FILGRASTIM
     Dosage: 300 MKG 2 DAYS
     Route: 065
     Dates: start: 20140505, end: 20140505
  6. FILGRASTIM [Suspect]
     Active Substance: FILGRASTIM
     Dosage: 300 MKG, UNK
     Route: 065
     Dates: start: 20140623
  7. PROPANORM [Concomitant]
     Active Substance: PROPAFENONE
     Indication: ATRIAL TACHYCARDIA
     Dosage: 300 MG, BID
     Route: 048
     Dates: start: 201401
  8. METOPROLOL. [Concomitant]
     Active Substance: METOPROLOL
     Dosage: 50 MG, 2 IN 1 D
     Route: 048
     Dates: start: 20140921
  9. FILGRASTIM [Suspect]
     Active Substance: FILGRASTIM
     Dosage: 300 MKG, UNK
     Route: 065
     Dates: start: 20140422, end: 20140422
  10. OBINUTUZUMAB [Suspect]
     Active Substance: OBINUTUZUMAB
     Indication: CHRONIC LYMPHOCYTIC LEUKAEMIA
     Dosage: 1000 MG, DAYS 1/2 IN SPLITED DOSE, 8 AND 15 OF CYCLE 1, AND ON DAY 1 OF CYCLES 2 TO 6
     Route: 042
     Dates: start: 20140226
  11. SULFAMETHOXAZOLE W/TRIMETHOPRIM [Concomitant]
     Active Substance: SULFAMETHOXAZOLE\TRIMETHOPRIM
     Dosage: 960 MG, BID
     Route: 048
     Dates: start: 20140616, end: 20140620
  12. FILGRASTIM [Suspect]
     Active Substance: FILGRASTIM
     Indication: PRODUCT USED FOR UNKNOWN INDICATION
     Dosage: 300 MG, UNK
     Route: 058
     Dates: start: 20140307, end: 20140307
  13. FILGRASTIM [Suspect]
     Active Substance: FILGRASTIM
     Dosage: 300 MKG, UNK
     Route: 065
     Dates: start: 20140417, end: 20140417
  14. BENDAMUSTINE [Suspect]
     Active Substance: BENDAMUSTINE
     Dosage: 70 MG/M2, 1 IN 1 D (INFUSION RATE: 120)
     Route: 042
     Dates: start: 20140227, end: 20140227
  15. AZITHROMYCIN ANHYDROUS. [Concomitant]
     Active Substance: AZITHROMYCIN ANHYDROUS
     Dosage: 500 MG, UNK
     Route: 048
     Dates: start: 20150216, end: 20150223
  16. FILGRASTIM [Suspect]
     Active Substance: FILGRASTIM
     Dosage: 300 MKG, UNK
     Route: 065
     Dates: start: 20140410, end: 20140410
  17. BENDAMUSTINE [Suspect]
     Active Substance: BENDAMUSTINE
     Dosage: UNK
     Route: 042
     Dates: start: 20140327
  18. DEXAMETASON [Concomitant]
     Active Substance: DEXAMETHASONE
     Indication: PROPHYLAXIS
     Dosage: 20 MG, UNK
     Route: 042
     Dates: start: 20140226, end: 20140226
  19. FILGRASTIM [Suspect]
     Active Substance: FILGRASTIM
     Dosage: 300 MKG, UNK
     Route: 065
     Dates: start: 20140428, end: 20140428
  20. VERAPAMIL [Concomitant]
     Active Substance: VERAPAMIL HYDROCHLORIDE
     Indication: ATRIAL TACHYCARDIA
     Dosage: 80 MG, BID
     Route: 048
     Dates: start: 201401
  21. NIFEDIPINE. [Concomitant]
     Active Substance: NIFEDIPINE
     Dosage: 20 MG, SINGLE DOSE
     Route: 048
     Dates: start: 20140226, end: 20140226
  22. LOPERAMIDE [Concomitant]
     Active Substance: LOPERAMIDE
     Dosage: 2 MG, TID
     Route: 048
     Dates: start: 20140616, end: 20140618
  23. ACETYLCYSTEINE. [Concomitant]
     Active Substance: ACETYLCYSTEINE
     Dosage: 300 MG, QD
     Route: 048
     Dates: start: 20150216, end: 20150223

REACTIONS (1)
  - Neutropenia [Recovered/Resolved]

NARRATIVE: CASE EVENT DATE: 20140306
